FAERS Safety Report 23595965 (Version 1)
Quarter: 2024Q1

REPORT INFORMATION
  Report Type: Spontaneous
  Country: US (occurrence: None)
  Receive Date: 20240304
  Receipt Date: 20240304
  Transmission Date: 20240410
  Serious: Yes (Other)
  Sender: FDA-Public Use
  Company Number: None

PATIENT
  Age: 17 Month
  Sex: Male
  Weight: 23.85 kg

DRUGS (1)
  1. MIRALAX [Suspect]
     Active Substance: POLYETHYLENE GLYCOL 3350
     Indication: Constipation
     Dosage: OTHER QUANTITY : 1 CAPFUL;?FREQUENCY : DAILY;?
     Route: 048

REACTIONS (3)
  - Obsessive-compulsive disorder [None]
  - Tic [None]
  - Hallucination [None]

NARRATIVE: CASE EVENT DATE: 20180301
